FAERS Safety Report 7830919-0 (Version None)
Quarter: 2011Q4

REPORT INFORMATION
  Report Type: 
  Country: None (occurrence: None)
  Receive Date: 20111021
  Receipt Date: 20111019
  Transmission Date: 20120403
  Serious: No
  Sender: FDA-Public Use
  Company Number: US-PFIZER INC-2011252696

PATIENT
  Sex: Female
  Weight: 52.154 kg

DRUGS (1)
  1. CELEBREX [Suspect]
     Indication: LOWER LIMB FRACTURE
     Dosage: 200 MG, 1X/DAY
     Route: 048
     Dates: start: 20110928, end: 20111017

REACTIONS (1)
  - RASH [None]
